FAERS Safety Report 10524958 (Version 1)
Quarter: 2014Q4

REPORT INFORMATION
  Report Type: Spontaneous
  Country: GR (occurrence: GR)
  Receive Date: 20141017
  Receipt Date: 20141017
  Transmission Date: 20150528
  Serious: Yes (Other)
  Sender: FDA-Public Use
  Company Number: GR-TEVA-515409ISR

PATIENT
  Age: 32 Year
  Sex: Female
  Weight: 75 kg

DRUGS (1)
  1. INDOMET RATIOPHARM [Suspect]
     Active Substance: INDOMETHACIN
     Indication: UTERINE CONTRACTIONS DURING PREGNANCY
     Route: 054
     Dates: start: 20140901, end: 20140901

REACTIONS (9)
  - Chills [Recovered/Resolved]
  - Hypertension [Recovered/Resolved]
  - Exposure during pregnancy [Unknown]
  - Dizziness [Recovered/Resolved]
  - Vomiting [Recovered/Resolved]
  - Tremor [Recovered/Resolved]
  - Diarrhoea [Recovered/Resolved]
  - Rash [Recovered/Resolved]
  - Pruritus [Recovered/Resolved]

NARRATIVE: CASE EVENT DATE: 20140901
